FAERS Safety Report 21792241 (Version 1)
Quarter: 2022Q4

REPORT INFORMATION
  Report Type: Report from Study
  Country: TW (occurrence: None)
  Receive Date: 20221229
  Receipt Date: 20221229
  Transmission Date: 20230113
  Serious: Yes (Hospitalization)
  Sender: FDA-Public Use
  Company Number: TW-ROCHE-3250892

PATIENT
  Age: 81 Year
  Sex: Female
  Weight: 49.7 kg

DRUGS (14)
  1. ATEZOLIZUMAB [Suspect]
     Active Substance: ATEZOLIZUMAB
     Indication: Hepatocellular carcinoma
     Route: 041
     Dates: start: 20221201
  2. BEVACIZUMAB [Suspect]
     Active Substance: BEVACIZUMAB
     Indication: Hepatocellular carcinoma
     Dosage: 762 MG
     Route: 042
     Dates: start: 20221201
  3. SRF-388 [Suspect]
     Active Substance: SRF-388
     Indication: Hepatocellular carcinoma
     Dosage: SINGLE DOSE, 508 MG
     Route: 042
     Dates: start: 20221201
  4. PROPRANOLOL [Concomitant]
     Active Substance: PROPRANOLOL HYDROCHLORIDE
     Dates: start: 20221124
  5. CEFACLOR [Concomitant]
     Active Substance: CEFACLOR
     Dates: start: 20221201, end: 20221203
  6. AMLODIPINE [Concomitant]
     Active Substance: AMLODIPINE BESYLATE
     Dates: start: 20180626
  7. VALSARTAN [Concomitant]
     Active Substance: VALSARTAN
     Dates: start: 20210828
  8. ALPRAZOLAM [Concomitant]
     Active Substance: ALPRAZOLAM
     Dates: start: 20211023
  9. DIPHENHYDRAMINE [Concomitant]
     Active Substance: DIPHENHYDRAMINE
     Route: 042
  10. DIPHENHYDRAMINE [Concomitant]
     Active Substance: DIPHENHYDRAMINE
     Route: 042
  11. HYDROCORTISONE [Concomitant]
     Active Substance: HYDROCORTISONE
     Route: 042
  12. ALBUTEROL [Concomitant]
     Active Substance: ALBUTEROL
  13. FUROSEMIDE [Concomitant]
     Active Substance: FUROSEMIDE
     Route: 042
  14. DEXLANSOPRAZOLE [Concomitant]
     Active Substance: DEXLANSOPRAZOLE

REACTIONS (1)
  - Portal hypertensive gastropathy [Recovered/Resolved]

NARRATIVE: CASE EVENT DATE: 20221203
